FAERS Safety Report 17144418 (Version 1)
Quarter: 2019Q4

REPORT INFORMATION
  Report Type: Spontaneous
  Country: US (occurrence: US)
  Receive Date: 20191212
  Receipt Date: 20191212
  Transmission Date: 20200122
  Serious: No
  Sender: FDA-Public Use
  Company Number: US-PFIZER INC-2019534069

PATIENT
  Age: 47 Year
  Sex: Female
  Weight: 88.89 kg

DRUGS (1)
  1. IBRANCE [Suspect]
     Active Substance: PALBOCICLIB
     Indication: BREAST CANCER METASTATIC
     Dosage: 125 MG, CYCLIC (D-1-21 Q 28 DAYS)
     Route: 048
     Dates: start: 20191128

REACTIONS (3)
  - Headache [Unknown]
  - Nausea [Unknown]
  - Product dose omission [Unknown]
